FAERS Safety Report 7998778-3 (Version None)
Quarter: 2011Q4

REPORT INFORMATION
  Report Type: 
  Country: None (occurrence: None)
  Receive Date: 20111216
  Receipt Date: 20111130
  Transmission Date: 20120403
  Serious: Yes (Other)
  Sender: FDA-Public Use
  Company Number: AUR-APL-2011-05774

PATIENT
  Age: 15 Year
  Sex: Male

DRUGS (32)
  1. GEODON [Suspect]
     Indication: PRODUCT USED FOR UNKNOWN INDICATION
  2. TEGRETOL [Suspect]
     Indication: PRODUCT USED FOR UNKNOWN INDICATION
  3. EFFEXOR XR [Suspect]
     Indication: PRODUCT USED FOR UNKNOWN INDICATION
  4. SOMA [Suspect]
     Indication: PRODUCT USED FOR UNKNOWN INDICATION
  5. CELEBREX [Suspect]
     Indication: PRODUCT USED FOR UNKNOWN INDICATION
  6. LEXAPRO [Suspect]
     Indication: PRODUCT USED FOR UNKNOWN INDICATION
  7. ZOLOFT [Suspect]
     Indication: PRODUCT USED FOR UNKNOWN INDICATION
  8. IMITREX [Suspect]
     Indication: HEADACHE
  9. LITHIUM CARBONATE [Suspect]
     Indication: PRODUCT USED FOR UNKNOWN INDICATION
     Dates: start: 20070101
  10. RISPERDAL [Suspect]
     Indication: PRODUCT USED FOR UNKNOWN INDICATION
     Dates: start: 20070101
  11. ELAVIL [Suspect]
     Indication: PRODUCT USED FOR UNKNOWN INDICATION
  12. RITALIN [Suspect]
     Indication: HEADACHE
  13. LAMICTAL [Suspect]
     Indication: PRODUCT USED FOR UNKNOWN INDICATION
  14. PAXIL [Suspect]
     Indication: PRODUCT USED FOR UNKNOWN INDICATION
  15. KLONOPIN [Suspect]
     Indication: PRODUCT USED FOR UNKNOWN INDICATION
  16. PAMELOR [Suspect]
     Indication: PRODUCT USED FOR UNKNOWN INDICATION
  17. ZYPREXA [Suspect]
     Indication: PRODUCT USED FOR UNKNOWN INDICATION
  18. TRAZODONE HCL [Suspect]
     Indication: DEPRESSION
  19. TRAZODONE HCL [Suspect]
     Indication: PAIN
  20. CYMBALTA [Suspect]
     Indication: DEPRESSION
  21. CYMBALTA [Suspect]
     Indication: PAIN
  22. MIRTAZAPINE [Suspect]
     Indication: PRODUCT USED FOR UNKNOWN INDICATION
     Dates: start: 20070101
  23. SKELAXIN [Suspect]
     Indication: PRODUCT USED FOR UNKNOWN INDICATION
  24. EFFEXOR [Suspect]
     Indication: PRODUCT USED FOR UNKNOWN INDICATION
     Dosage: 3.75 MG
  25. DEPAKOTE [Suspect]
     Indication: HEADACHE
  26. WELLBUTRIN [Suspect]
     Indication: PRODUCT USED FOR UNKNOWN INDICATION
  27. BUSPAR [Suspect]
     Indication: PRODUCT USED FOR UNKNOWN INDICATION
  28. ZOMIG [Suspect]
     Indication: HEADACHE
  29. SEROQUEL [Suspect]
     Indication: PRODUCT USED FOR UNKNOWN INDICATION
     Dates: start: 20070101
  30. VALIUM [Suspect]
     Indication: HYPOTONIA
  31. VALIUM [Suspect]
     Indication: ANXIETY
  32. VALIUM [Suspect]
     Indication: PAIN

REACTIONS (24)
  - HEADACHE [None]
  - DISTURBANCE IN ATTENTION [None]
  - SUICIDAL IDEATION [None]
  - FATIGUE [None]
  - MOOD ALTERED [None]
  - MEMORY IMPAIRMENT [None]
  - AGGRESSION [None]
  - CONSTIPATION [None]
  - GYNAECOMASTIA [None]
  - AGITATION [None]
  - ANGER [None]
  - DRUG INEFFECTIVE [None]
  - WEIGHT INCREASED [None]
  - RASH [None]
  - INSOMNIA [None]
  - DEAFNESS [None]
  - RECTAL HAEMORRHAGE [None]
  - INFLUENZA [None]
  - MUSCLE SPASMS [None]
  - SOMNOLENCE [None]
  - ERECTION INCREASED [None]
  - TINNITUS [None]
  - HEAD INJURY [None]
  - GASTRIC ULCER [None]
